FAERS Safety Report 8984786 (Version 2)
Quarter: 2013Q1

REPORT INFORMATION
  Report Type: Report from Study
  Country: JP (occurrence: JP)
  Receive Date: 20121225
  Receipt Date: 20130131
  Transmission Date: 20140127
  Serious: Yes (Death)
  Sender: FDA-Public Use
  Company Number: JP-JNJFOC-20121209107

PATIENT
  Age: 69 Year
  Sex: Male
  Weight: 46 kg

DRUGS (7)
  1. INVEGA [Suspect]
     Indication: DELUSIONAL DISORDER, UNSPECIFIED TYPE
     Route: 048
     Dates: start: 20111005, end: 20120316
  2. RISPERDAL CONSTA [Suspect]
     Indication: DELUSIONAL DISORDER, UNSPECIFIED TYPE
     Route: 030
  3. RISPERDAL CONSTA [Suspect]
     Indication: DELUSIONAL DISORDER, UNSPECIFIED TYPE
     Route: 030
     Dates: start: 20120217, end: 20120316
  4. GOODMIN [Suspect]
     Indication: DELUSIONAL DISORDER, UNSPECIFIED TYPE
     Route: 048
     Dates: start: 20111207, end: 20120316
  5. ARTANE [Suspect]
     Indication: PROPHYLAXIS
     Route: 048
     Dates: start: 20120310, end: 20120316
  6. U-PAN (LORAZEPAM) [Concomitant]
     Indication: DELUSIONAL DISORDER, UNSPECIFIED TYPE
     Route: 048
     Dates: start: 20111207, end: 20111216
  7. U-PAN (LORAZEPAM) [Concomitant]
     Indication: DELUSIONAL DISORDER, UNSPECIFIED TYPE
     Route: 048
     Dates: start: 20111217, end: 20111227

REACTIONS (2)
  - Completed suicide [Fatal]
  - Blood prolactin abnormal [Unknown]
